FAERS Safety Report 6341943-1 (Version None)
Quarter: 2009Q3

REPORT INFORMATION
  Report Type: 
  Country: None (occurrence: None)
  Receive Date: 20090904
  Receipt Date: 20090827
  Transmission Date: 20100115
  Serious: Yes (Death)
  Sender: FDA-Public Use
  Company Number: JP-ABBOTT-09P-087-0595105-00

PATIENT
  Age: 72 Year
  Sex: Male

DRUGS (7)
  1. LEUPLIN SR FOR INJECTION 11.25 MG [Suspect]
     Indication: PROSTATE CANCER STAGE II
     Route: 058
     Dates: start: 20060925, end: 20070625
  2. TAKEPRON [Concomitant]
     Indication: REFLUX OESOPHAGITIS
     Route: 048
     Dates: end: 20070625
  3. ALDACTONE [Concomitant]
     Indication: CARDIAC FAILURE
     Route: 048
     Dates: end: 20070625
  4. LASIX [Concomitant]
     Indication: CARDIAC FAILURE
     Route: 048
     Dates: end: 20070625
  5. DIART [Concomitant]
     Indication: CARDIAC FAILURE
     Route: 048
     Dates: end: 20070625
  6. TANATRIL [Concomitant]
     Indication: CARDIAC FAILURE
     Route: 048
     Dates: end: 20070625
  7. ALOSITOL [Concomitant]
     Indication: HYPERURICAEMIA
     Route: 048
     Dates: end: 20070625

REACTIONS (1)
  - CARDIAC FAILURE [None]
